FAERS Safety Report 9339104 (Version 1)
Quarter: 2013Q2

REPORT INFORMATION
  Report Type: Spontaneous
  Country: US (occurrence: None)
  Receive Date: 20130606
  Receipt Date: 20130606
  Transmission Date: 20140414
  Serious: Yes (Disabling, Other)
  Sender: FDA-Public Use
  Company Number: None

PATIENT
  Age: 80 Year
  Sex: Male
  Weight: 94.35 kg

DRUGS (1)
  1. NEURONTIN (GABAPENTIN) [Suspect]
     Indication: NERVE INJURY
     Route: 048
     Dates: start: 20130322, end: 20130223

REACTIONS (9)
  - Fatigue [None]
  - Asthenia [None]
  - Nerve injury [None]
  - Rash [None]
  - Urticaria [None]
  - Myalgia [None]
  - Visual impairment [None]
  - Feeling cold [None]
  - Neuralgia [None]
